FAERS Safety Report 25941878 (Version 1)
Quarter: 2025Q4

REPORT INFORMATION
  Report Type: Spontaneous
  Country: US (occurrence: None)
  Receive Date: 20251020
  Receipt Date: 20251020
  Transmission Date: 20260118
  Serious: Yes (Hospitalization)
  Sender: FDA-CTU
  Company Number: None

PATIENT
  Age: 78 Year
  Sex: Female

DRUGS (1)
  1. LENALIDOMIDE [Suspect]
     Active Substance: LENALIDOMIDE
     Indication: Plasma cell myeloma
     Dosage: 2.5 MG QDAY X21 ON, 7 OFF ORAL?
     Route: 048
     Dates: start: 20250911

REACTIONS (2)
  - Tremor [None]
  - Chills [None]

NARRATIVE: CASE EVENT DATE: 20251014
